FAERS Safety Report 4727527-7 (Version None)
Quarter: 2005Q3

REPORT INFORMATION
  Report Type: 
  Country: None (occurrence: None)
  Receive Date: 20050727
  Receipt Date: 20050727
  Transmission Date: 20060218
  Serious: Yes (Other)
  Sender: FDA-Public Use
  Company Number: None

PATIENT
  Age: 73 Year
  Sex: Male

DRUGS (1)
  1. ERLOTINIB 150 MG [Suspect]
     Indication: NEOPLASM MALIGNANT
     Dosage: 150MG DAILY ORAL
     Route: 048

REACTIONS (3)
  - PRURITUS [None]
  - RASH PUSTULAR [None]
  - SKIN INFECTION [None]
